FAERS Safety Report 25088548 (Version 1)
Quarter: 2025Q1

REPORT INFORMATION
  Report Type: Spontaneous
  Country: FR (occurrence: FR)
  Receive Date: 20250318
  Receipt Date: 20250318
  Transmission Date: 20250409
  Serious: Yes (Hospitalization, Other)
  Sender: ORGANON
  Company Number: None

PATIENT
  Age: 79 Year
  Sex: Male
  Weight: 68 kg

DRUGS (2)
  1. DIPROSONE [Suspect]
     Active Substance: BETAMETHASONE DIPROPIONATE
     Indication: Stasis dermatitis
     Dosage: 1 DOSAGE FORM, Q24H
     Route: 003
     Dates: start: 20250123, end: 20250204
  2. CLOBETASOL PROPIONATE [Suspect]
     Active Substance: CLOBETASOL PROPIONATE
     Indication: Stasis dermatitis
     Dosage: 1 DOSAGE FORM, Q12H
     Route: 003
     Dates: start: 20250117, end: 20250122

REACTIONS (2)
  - Duodenal ulcer [Recovering/Resolving]
  - Diabetes mellitus [Recovered/Resolved]

NARRATIVE: CASE EVENT DATE: 20250120
